FAERS Safety Report 16549039 (Version 1)
Quarter: 2019Q3

REPORT INFORMATION
  Report Type: Spontaneous
  Country: US (occurrence: US)
  Receive Date: 20190709
  Receipt Date: 20190709
  Transmission Date: 20191004
  Serious: No
  Sender: FDA-Public Use
  Company Number: US-TEVA-2019-US-1069147

PATIENT
  Sex: Female

DRUGS (1)
  1. TRAZODONE HYDROCHLORIDE TABLET [Suspect]
     Active Substance: TRAZODONE HYDROCHLORIDE
     Indication: DERMATITIS HERPETIFORMIS
     Route: 065
     Dates: start: 201902

REACTIONS (5)
  - Rash [Unknown]
  - Pruritus [Unknown]
  - Blister [Unknown]
  - Product use in unapproved indication [Unknown]
  - Pain [Unknown]

NARRATIVE: CASE EVENT DATE: 201902
